FAERS Safety Report 19092056 (Version 1)
Quarter: 2021Q2

REPORT INFORMATION
  Report Type: Spontaneous
  Country: IT (occurrence: IT)
  Receive Date: 20210403
  Receipt Date: 20210403
  Transmission Date: 20210717
  Serious: Yes (Disabling)
  Sender: FDA-Public Use
  Company Number: None

PATIENT
  Age: 19 Year
  Sex: Male
  Weight: 74 kg

DRUGS (1)
  1. ZELDOX [Suspect]
     Active Substance: ZIPRASIDONE
     Indication: DEPRESSION
     Dosage: QUANTITY:20 CAPSULE(S);?
     Route: 048
     Dates: start: 20110121, end: 20110131

REACTIONS (4)
  - Obsessive-compulsive disorder [None]
  - Drug ineffective [None]
  - Mental disorder [None]
  - Condition aggravated [None]

NARRATIVE: CASE EVENT DATE: 20110121
